FAERS Safety Report 6670850-X (Version None)
Quarter: 2010Q2

REPORT INFORMATION
  Report Type: 
  Country: None (occurrence: None)
  Receive Date: 20100407
  Receipt Date: 20100313
  Transmission Date: 20101027
  Serious: Yes (Death)
  Sender: FDA-Public Use
  Company Number: NSADSS2002041551

PATIENT
  Age: 80 Year
  Sex: Male

DRUGS (6)
  1. LEVOFLOXACIN [Suspect]
     Indication: PNEUMONIA
     Route: 048
     Dates: start: 20020810, end: 20020812
  2. PYDOXAL [Concomitant]
     Indication: DRUG USE FOR UNKNOWN INDICATION
     Route: 065
  3. ESANBUTOL [Concomitant]
     Indication: DRUG USE FOR UNKNOWN INDICATION
     Route: 048
  4. RIMACTANE [Concomitant]
     Indication: DRUG USE FOR UNKNOWN INDICATION
     Route: 048
  5. ISCOTIN [Concomitant]
     Indication: PULMONARY TUBERCULOSIS
     Route: 065
  6. PYRAZINAMIDE [Concomitant]
     Indication: DRUG USE FOR UNKNOWN INDICATION
     Route: 048

REACTIONS (5)
  - DELIRIUM [None]
  - INAPPROPRIATE ANTIDIURETIC HORMONE SECRETION [None]
  - RASH [None]
  - RESPIRATORY FAILURE [None]
  - TREMOR [None]
